FAERS Safety Report 10264234 (Version 2)
Quarter: 2014Q4

REPORT INFORMATION
  Report Type: Spontaneous
  Country: FR (occurrence: None)
  Receive Date: 20140624
  Receipt Date: 20141113
  Transmission Date: 20150528
  Serious: Yes (Hospitalization, Other)
  Sender: FDA-Public Use
  Company Number: IMP_07697_2014

PATIENT
  Age: 39 Year
  Sex: Male

DRUGS (1)
  1. BACLOFEN. [Suspect]
     Active Substance: BACLOFEN
     Indication: ALCOHOL ABUSE
     Dosage: 140 MG [NOT THE PRESCRIBED DOSE, SUPPOSE DOSE] ORAL)
     Route: 048

REACTIONS (2)
  - Intentional overdose [None]
  - Toxicity to various agents [None]
